FAERS Safety Report 18820148 (Version 1)
Quarter: 2021Q1

REPORT INFORMATION
  Report Type: Spontaneous
  Country: CN (occurrence: CN)
  Receive Date: 20210202
  Receipt Date: 20210202
  Transmission Date: 20210419
  Serious: Yes (Other)
  Sender: FDA-Public Use
  Company Number: CN-SUN PHARMACEUTICAL INDUSTRIES LTD-2021R1-278769

PATIENT
  Age: 42 Year
  Sex: Female

DRUGS (5)
  1. CARBOPLATIN. [Suspect]
     Active Substance: CARBOPLATIN
     Indication: CHEMOTHERAPY
     Dosage: UNK (550 MILLIGRAM)
     Route: 042
  2. OSIMERTINIB. [Suspect]
     Active Substance: OSIMERTINIB
     Indication: CHEMOTHERAPY
     Dosage: 80 MILLIGRAM, DAILY
     Route: 048
  3. BEVACIZUMAB. [Suspect]
     Active Substance: BEVACIZUMAB
     Indication: CHEMOTHERAPY
     Dosage: 500 MILLIGRAM
     Route: 042
  4. DOCETAXEL. [Suspect]
     Active Substance: DOCETAXEL
     Indication: CHEMOTHERAPY
     Dosage: UNK (120 MILLIGRAM/ 3 CYCLES)
     Route: 065
  5. PEMETREXED. [Suspect]
     Active Substance: PEMETREXED
     Indication: CHEMOTHERAPY
     Dosage: UNK (800 MILLIGRAM)
     Route: 042

REACTIONS (1)
  - Disease progression [Unknown]
